FAERS Safety Report 15393460 (Version 1)
Quarter: 2018Q3

REPORT INFORMATION
  Report Type: Other
  Country: US (occurrence: US)
  Receive Date: 20180917
  Receipt Date: 20180917
  Transmission Date: 20181010
  Serious: No
  Sender: FDA-Public Use
  Company Number: US-LEADIANT BIOSCIENCES INC-2017STPI000759

PATIENT
  Sex: Male

DRUGS (9)
  1. BUSPIRONE [Concomitant]
     Active Substance: BUSPIRONE HYDROCHLORIDE
  2. MATULANE [Suspect]
     Active Substance: PROCARBAZINE HYDROCHLORIDE
     Indication: BRAIN NEOPLASM MALIGNANT
     Dosage: 50 MG, 2 CAPSULES DAILY
     Route: 048
     Dates: start: 20170331
  3. OMEPRAZOLE. [Concomitant]
     Active Substance: OMEPRAZOLE
  4. KEPPRA [Concomitant]
     Active Substance: LEVETIRACETAM
  5. THIORIDAZINE [Concomitant]
     Active Substance: THIORIDAZINE
  6. CHLOROTHIAZIDE. [Concomitant]
     Active Substance: CHLOROTHIAZIDE
  7. HYDROCODONE [Concomitant]
     Active Substance: HYDROCODONE
  8. ATIVAN [Concomitant]
     Active Substance: LORAZEPAM
  9. DEXMETHASONE [Concomitant]
     Active Substance: DEXAMETHASONE

REACTIONS (1)
  - White blood cell count decreased [Not Recovered/Not Resolved]
